FAERS Safety Report 9433610 (Version 3)
Quarter: 2013Q3

REPORT INFORMATION
  Report Type: Spontaneous
  Country: US (occurrence: US)
  Receive Date: 20130731
  Receipt Date: 20130829
  Transmission Date: 20140515
  Serious: Yes (Hospitalization, Other)
  Sender: FDA-Public Use
  Company Number: US-ROCHE-1243518

PATIENT
  Age: 57 Year
  Sex: Female
  Weight: 54.48 kg

DRUGS (8)
  1. PEGASYS [Suspect]
     Indication: CHRONIC HEPATITIS C
     Route: 058
     Dates: start: 20130619, end: 20130621
  2. RIBAVIRIN [Interacting]
     Indication: CHRONIC HEPATITIS C
     Dosage: 3Q IN AM AND 2PQ IN PM
     Route: 048
     Dates: start: 20130619, end: 20130621
  3. INCIVEK [Interacting]
     Indication: CHRONIC HEPATITIS C
     Route: 065
     Dates: start: 20130619, end: 20130621
  4. XANAX [Interacting]
     Indication: PRODUCT USED FOR UNKNOWN INDICATION
     Route: 065
     Dates: start: 20130619
  5. SOMA (CARISOPRODOL) [Interacting]
     Indication: PRODUCT USED FOR UNKNOWN INDICATION
     Route: 065
     Dates: start: 20130619
  6. NORCO [Concomitant]
     Indication: PRODUCT USED FOR UNKNOWN INDICATION
     Route: 065
     Dates: start: 20130619
  7. LACTULOSE [Concomitant]
  8. LEVAQUIN [Concomitant]
     Route: 065

REACTIONS (5)
  - Pneumonia [Recovered/Resolved]
  - Mental status changes [Recovered/Resolved]
  - Drug interaction [Unknown]
  - Mental disorder [Recovered/Resolved]
  - Accidental overdose [Unknown]
